FAERS Safety Report 10156138 (Version 1)
Quarter: 2014Q2

REPORT INFORMATION
  Report Type: Report from Study
  Country: BR (occurrence: BR)
  Receive Date: 20140506
  Receipt Date: 20140506
  Transmission Date: 20141212
  Serious: Yes (Hospitalization, Other)
  Sender: FDA-Public Use
  Company Number: PHHY2014BR053838

PATIENT
  Sex: Female
  Weight: 45 kg

DRUGS (4)
  1. ZOTEON PODHALER [Suspect]
     Indication: LUNG DISORDER
     Dosage: 10 CAPSULES, (5 DURING DAY AND 5 DURING NIGHT)
     Dates: start: 20140402
  2. CREON [Concomitant]
     Indication: PANCREATIC DISORDER
     Dosage: 20 DF, (20 CAPSULES) DAILY
  3. PULMOZYME [Concomitant]
     Indication: LUNG DISORDER
     Dosage: 2 DF, (2 AMPOULES)
  4. POLYVITAMIN [Concomitant]
     Indication: HYPOVITAMINOSIS
     Dosage: UNK (24 DROPS DAILY)

REACTIONS (1)
  - Lung infection [Recovered/Resolved]
